FAERS Safety Report 11582956 (Version 1)
Quarter: 2015Q3

REPORT INFORMATION
  Report Type: Spontaneous
  Country: US (occurrence: None)
  Receive Date: 20150930
  Receipt Date: 20150930
  Transmission Date: 20151125
  Serious: No
  Sender: FDA-Public Use
  Company Number: None

PATIENT
  Age: 76 Year
  Sex: Female
  Weight: 81.19 kg

DRUGS (5)
  1. TYLENOL [Concomitant]
     Active Substance: ACETAMINOPHEN
  2. DAILY VITAMINS [Concomitant]
  3. GABAPENTIN 300 MG CAP AMN GENERIC FOR NEURONTIN 300 MG-CAP [Suspect]
     Active Substance: GABAPENTIN
     Indication: NEUROPATHY PERIPHERAL
     Dosage: 30; ONE AT BEDTIME, BY MOUTH
     Dates: start: 20150820
  4. VITAMIN B12 [Concomitant]
     Active Substance: CYANOCOBALAMIN
  5. ZOLOFT [Concomitant]
     Active Substance: SERTRALINE HYDROCHLORIDE

REACTIONS (4)
  - Somnolence [None]
  - Feeling abnormal [None]
  - Impaired driving ability [None]
  - Quality of life decreased [None]

NARRATIVE: CASE EVENT DATE: 20150820
